FAERS Safety Report 7200618-7 (Version None)
Quarter: 2010Q4

REPORT INFORMATION
  Report Type: 
  Country: None (occurrence: None)
  Receive Date: 20101228
  Receipt Date: 20101214
  Transmission Date: 20110411
  Serious: Yes (Other)
  Sender: FDA-Public Use
  Company Number: JP-MYLANLABS-2010S1023261

PATIENT
  Age: 6 Decade
  Sex: Male

DRUGS (30)
  1. CYCLOPHOSPHAMIDE [Suspect]
     Indication: PERIPHERAL T-CELL LYMPHOMA UNSPECIFIED
     Dosage: 3 CYCLES
     Route: 065
  2. CYCLOPHOSPHAMIDE [Suspect]
     Indication: SALVAGE THERAPY
     Dosage: 3 CYCLES
     Route: 065
  3. CYCLOPHOSPHAMIDE [Suspect]
     Dosage: 1 CYCLE
     Route: 065
  4. CYCLOPHOSPHAMIDE [Suspect]
     Dosage: 1 CYCLE
     Route: 065
  5. VINCRISTINE [Suspect]
     Indication: PERIPHERAL T-CELL LYMPHOMA UNSPECIFIED
     Dosage: 3 CYCLES
     Route: 065
  6. VINCRISTINE [Suspect]
     Indication: SALVAGE THERAPY
     Dosage: 3 CYCLES
     Route: 065
  7. VINCRISTINE [Suspect]
     Dosage: 1 CYCLE
     Route: 065
  8. VINCRISTINE [Suspect]
     Dosage: 1 CYCLE
     Route: 065
  9. DOXORUBICIN HCL [Suspect]
     Indication: PERIPHERAL T-CELL LYMPHOMA UNSPECIFIED
     Dosage: 3 CYCLES
     Route: 065
  10. DOXORUBICIN HCL [Suspect]
     Indication: SALVAGE THERAPY
     Dosage: 3 CYCLES
     Route: 065
  11. DOXORUBICIN HCL [Suspect]
     Dosage: 1 CYCLE
     Route: 065
  12. DOXORUBICIN HCL [Suspect]
     Dosage: 1 CYCLE
     Route: 065
  13. DEXAMETHASONE [Suspect]
     Indication: PERIPHERAL T-CELL LYMPHOMA UNSPECIFIED
     Dosage: 3 CYCLES
     Route: 065
  14. DEXAMETHASONE [Suspect]
     Indication: SALVAGE THERAPY
     Dosage: 3 CYCLES
     Route: 065
  15. DEXAMETHASONE [Suspect]
     Indication: PALLIATIVE CARE
     Dosage: 3 CYCLES
     Route: 065
  16. DEXAMETHASONE [Suspect]
     Dosage: 1 CYCLE
     Route: 065
  17. DEXAMETHASONE [Suspect]
     Dosage: 1 CYCLE
     Route: 065
  18. DEXAMETHASONE [Suspect]
     Dosage: 1 CYCLE
     Route: 065
  19. DEXAMETHASONE [Suspect]
     Dosage: DAYS 4-6
     Route: 065
  20. DEXAMETHASONE [Suspect]
     Dosage: DAYS 4-6
     Route: 065
  21. DEXAMETHASONE [Suspect]
     Dosage: DAYS 4-6
     Route: 065
  22. METHOTREXATE [Suspect]
     Indication: PERIPHERAL T-CELL LYMPHOMA UNSPECIFIED
     Dosage: HIGH-DOSE
     Route: 065
  23. CYTARABINE [Suspect]
     Indication: PERIPHERAL T-CELL LYMPHOMA UNSPECIFIED
     Route: 065
  24. ETOPOSIDE [Suspect]
     Indication: SALVAGE THERAPY
     Dosage: 1 CYCLE
     Route: 065
  25. PREDNISOLONE [Suspect]
     Indication: SALVAGE THERAPY
     Dosage: 1 CYCLE
     Route: 065
  26. IFOSFAMIDE [Suspect]
     Indication: SALVAGE THERAPY
     Dosage: 1 CYCLE
     Route: 065
  27. CARBOPLATIN [Suspect]
     Indication: SALVAGE THERAPY
     Dosage: 1 CYCLE
     Route: 065
  28. GEMCITABINE [Suspect]
     Indication: SALVAGE THERAPY
     Dosage: 1 CYCLE
     Route: 065
  29. CISPLATIN [Suspect]
     Indication: SALVAGE THERAPY
     Dosage: 1 CYCLE
     Route: 065
  30. IRINOTECAN HCL [Suspect]
     Indication: PALLIATIVE CARE
     Dosage: DAYS 1-3
     Route: 065

REACTIONS (2)
  - POLYOMAVIRUS-ASSOCIATED NEPHROPATHY [None]
  - RENAL FAILURE ACUTE [None]
